FAERS Safety Report 10287127 (Version 2)
Quarter: 2014Q3

REPORT INFORMATION
  Report Type: Spontaneous
  Country: US (occurrence: US)
  Receive Date: 20140709
  Receipt Date: 20140724
  Transmission Date: 20150326
  Serious: Yes (Other)
  Sender: FDA-Public Use
  Company Number: US-SA-2014SA085956

PATIENT
  Age: 35 Year
  Sex: Female
  Weight: 83 kg

DRUGS (2)
  1. AUBAGIO [Suspect]
     Active Substance: TERIFLUNOMIDE
     Indication: MULTIPLE SCLEROSIS
     Route: 065
     Dates: start: 201212, end: 20130531
  2. PRENATAL [Concomitant]
     Active Substance: VITAMINS
     Indication: PREGNANCY
     Dates: start: 20140114

REACTIONS (2)
  - Gestational diabetes [Unknown]
  - Exposure during pregnancy [Unknown]
